FAERS Safety Report 26177880 (Version 1)
Quarter: 2025Q4

REPORT INFORMATION
  Report Type: Spontaneous
  Country: CN (occurrence: CN)
  Receive Date: 20251219
  Receipt Date: 20251219
  Transmission Date: 20260118
  Serious: Yes (Hospitalization)
  Sender: GE HEALTHCARE
  Company Number: None

PATIENT
  Age: 79 Year
  Sex: Female
  Weight: 68 kg

DRUGS (1)
  1. VISIPAQUE [Suspect]
     Active Substance: IODIXANOL
     Indication: Diagnostic procedure
     Dosage: 100 ML, TOTAL
     Route: 013
     Dates: start: 20251205, end: 20251205

REACTIONS (3)
  - Ocular discomfort [Recovered/Resolved]
  - Eyelid oedema [Recovered/Resolved]
  - Face oedema [Recovered/Resolved]

NARRATIVE: CASE EVENT DATE: 20251205
